FAERS Safety Report 13220695 (Version 1)
Quarter: 2017Q1

REPORT INFORMATION
  Report Type: Report from Study
  Country: US (occurrence: US)
  Receive Date: 20170211
  Receipt Date: 20170211
  Transmission Date: 20170428
  Serious: No
  Sender: FDA-Public Use
  Company Number: PHEH2017US003839

PATIENT
  Age: 33 Year
  Sex: Male

DRUGS (2)
  1. OMEGA 3 [Concomitant]
     Active Substance: OMEGA-3 FATTY ACIDS
     Indication: PRODUCT USED FOR UNKNOWN INDICATION
     Route: 065
  2. COSENTYX [Suspect]
     Active Substance: SECUKINUMAB
     Indication: PSORIASIS
     Dosage: 300 MG/KG, QMO
     Route: 030
     Dates: start: 2016

REACTIONS (7)
  - Skin haemorrhage [Recovered/Resolved]
  - Weight increased [Unknown]
  - Scab [Not Recovered/Not Resolved]
  - Skin discolouration [Unknown]
  - Scratch [Unknown]
  - Psoriasis [Unknown]
  - Incorrect route of drug administration [Unknown]

NARRATIVE: CASE EVENT DATE: 20161201
